FAERS Safety Report 21179588 (Version 1)
Quarter: 2022Q3

REPORT INFORMATION
  Report Type: Spontaneous
  Country: US (occurrence: US)
  Receive Date: 20220805
  Receipt Date: 20220805
  Transmission Date: 20221027
  Serious: Yes (Other)
  Sender: FDA-Public Use
  Company Number: US-AMERICAN REGENT INC-2022002187

PATIENT
  Age: 79 Year
  Sex: Female

DRUGS (2)
  1. DOPAMINE HYDROCHLORIDE [Suspect]
     Active Substance: DOPAMINE HYDROCHLORIDE
     Indication: Cardiogenic shock
     Dosage: UNK
     Route: 042
  2. NOREPINEPHRINE [Suspect]
     Active Substance: NOREPINEPHRINE
     Indication: Cardiogenic shock
     Dosage: UNK
     Route: 042

REACTIONS (3)
  - Left ventricle outflow tract obstruction [Recovered/Resolved]
  - Peripheral coldness [Recovered/Resolved]
  - Hypotension [Recovered/Resolved]
